FAERS Safety Report 22018860 (Version 1)
Quarter: 2023Q1

REPORT INFORMATION
  Report Type: Spontaneous
  Country: JP (occurrence: JP)
  Receive Date: 20230222
  Receipt Date: 20230222
  Transmission Date: 20230418
  Serious: Yes (Other)
  Sender: FDA-Public Use
  Company Number: JP-TAKEDA-2022TJP025333

PATIENT

DRUGS (1)
  1. CABOMETYX [Suspect]
     Active Substance: CABOZANTINIB S-MALATE
     Indication: Metastatic renal cell carcinoma
     Dosage: UNK
     Route: 048

REACTIONS (14)
  - Interstitial lung disease [Unknown]
  - Hepatic failure [Unknown]
  - Palmar-plantar erythrodysaesthesia syndrome [Unknown]
  - Proteinuria [Unknown]
  - Diarrhoea [Unknown]
  - Malaise [Unknown]
  - Liver disorder [Unknown]
  - Hypertension [Unknown]
  - Diarrhoea [Unknown]
  - Taste disorder [Unknown]
  - Decreased appetite [Unknown]
  - Proteinuria [Unknown]
  - Rash [Unknown]
  - Palmar-plantar erythrodysaesthesia syndrome [Unknown]
